FAERS Safety Report 5571408-6 (Version None)
Quarter: 2007Q4

REPORT INFORMATION
  Report Type: 
  Country: None (occurrence: None)
  Receive Date: 20071221
  Receipt Date: 20071019
  Transmission Date: 20080405
  Serious: No
  Sender: FDA-Public Use
  Company Number: A0689004A

PATIENT
  Sex: Female

DRUGS (1)
  1. FLUTICASONE PROPIONATE [Suspect]
     Route: 045

REACTIONS (3)
  - NASAL DISCOMFORT [None]
  - NASAL ULCER [None]
  - PHARMACEUTICAL PRODUCT COMPLAINT [None]
